FAERS Safety Report 11259426 (Version 1)
Quarter: 2015Q3

REPORT INFORMATION
  Report Type: Spontaneous
  Country: AU (occurrence: AU)
  Receive Date: 20150710
  Receipt Date: 20150710
  Transmission Date: 20151125
  Serious: Yes (Death, Life-Threatening, Other)
  Sender: FDA-Public Use
  Company Number: AU-HOSPIRA-2932239

PATIENT
  Age: 37 Year
  Sex: Male

DRUGS (6)
  1. MESNA. [Suspect]
     Active Substance: MESNA
     Indication: NEUTROPHIL COUNT DECREASED
     Route: 041
     Dates: start: 20040830, end: 20041014
  2. RITUXAN [Suspect]
     Active Substance: RITUXIMAB
     Indication: DIFFUSE LARGE B-CELL LYMPHOMA
     Route: 042
     Dates: start: 20040830, end: 20041014
  3. LENOGRASTIM [Suspect]
     Active Substance: LENOGRASTIM
     Indication: NEUTROPHIL COUNT DECREASED
     Route: 058
     Dates: start: 20040830, end: 20041014
  4. IFOSFAMIDE. [Suspect]
     Active Substance: IFOSFAMIDE
     Indication: DIFFUSE LARGE B-CELL LYMPHOMA
     Route: 041
     Dates: start: 20040830, end: 20041014
  5. CARBOPLATIN. [Suspect]
     Active Substance: CARBOPLATIN
     Indication: DIFFUSE LARGE B-CELL LYMPHOMA
     Route: 042
     Dates: start: 20040830, end: 20041014
  6. ETOPOSIDE. [Suspect]
     Active Substance: ETOPOSIDE
     Indication: DIFFUSE LARGE B-CELL LYMPHOMA
     Route: 042
     Dates: start: 20040830, end: 20041014

REACTIONS (6)
  - Tooth abscess [Recovered/Resolved]
  - Dental caries [Recovered/Resolved]
  - Transitional cell carcinoma [Fatal]
  - Lymphoedema [Unknown]
  - Pelvic pain [Unknown]
  - Inguinal hernia [Unknown]

NARRATIVE: CASE EVENT DATE: 20041201
